FAERS Safety Report 8271967-9 (Version None)
Quarter: 2012Q1

REPORT INFORMATION
  Report Type: 
  Country: None (occurrence: None)
  Receive Date: 20120308
  Receipt Date: 20111129
  Transmission Date: 20120608
  Serious: No
  Sender: FDA-Public Use
  Company Number: PHEH2011US010575

PATIENT
  Age: 38 Year
  Sex: Female
  Weight: 119.3 kg

DRUGS (3)
  1. FANAPT [Suspect]
     Indication: BIPOLAR DISORDER
     Dosage: UNK UKN, UNK
     Dates: start: 20111019, end: 20111021
  2. PAXIL [Concomitant]
  3. LORTAB [Concomitant]

REACTIONS (2)
  - EXERTIONAL HEADACHE [None]
  - TENSION HEADACHE [None]
